FAERS Safety Report 8571105-9 (Version None)
Quarter: 2012Q3

REPORT INFORMATION
  Report Type: 
  Country: None (occurrence: None)
  Receive Date: 20120806
  Receipt Date: 20120803
  Transmission Date: 20120928
  Serious: No
  Sender: FDA-Public Use
  Company Number: US-PFIZER INC-2012189368

PATIENT
  Age: 58 Year
  Sex: Female
  Weight: 68.934 kg

DRUGS (6)
  1. VENLAFAXINE [Concomitant]
     Indication: ANXIETY
     Dosage: 75 MG, 2X/DAY
  2. CHANTIX [Suspect]
     Indication: SMOKING CESSATION THERAPY
     Dosage: UNK
     Dates: start: 20030101, end: 20030101
  3. ALPRAZOLAM [Concomitant]
     Indication: DEPRESSION
  4. PROZAC [Concomitant]
     Indication: DEPRESSION
     Dosage: 1 MG, DAILY
  5. VENLAFAXINE [Concomitant]
     Indication: DEPRESSION
  6. ALPRAZOLAM [Concomitant]
     Indication: ANXIETY
     Dosage: 1 MG, 4X/DAY

REACTIONS (2)
  - NAUSEA [None]
  - NIGHTMARE [None]
